FAERS Safety Report 5208664-X (Version None)
Quarter: 2007Q1

REPORT INFORMATION
  Report Type: 
  Country: None (occurrence: None)
  Receive Date: 20070116
  Receipt Date: 20070102
  Transmission Date: 20070707
  Serious: Yes (Hospitalization, Other)
  Sender: FDA-Public Use
  Company Number: PHEH2005US10979

PATIENT
  Age: 57 Year
  Sex: Female
  Weight: 95.691 kg

DRUGS (14)
  1. VIOXX [Concomitant]
  2. GLUCOTROL [Concomitant]
  3. MS CONTIN [Concomitant]
     Indication: PAIN
     Dosage: 300 MG, BID
     Dates: start: 19990615
  4. MS CONTIN [Concomitant]
     Dosage: 30 MG, BID
  5. AREDIA [Suspect]
     Indication: MULTIPLE MYELOMA
     Dosage: 60 MG, ONCE/SINGLE
     Dates: start: 20040301
  6. AREDIA [Suspect]
     Dosage: 90 MG, QMO
     Dates: start: 19980402
  7. NEURONTIN [Concomitant]
  8. COUMADIN [Concomitant]
  9. LASIX [Concomitant]
  10. DITROPAN [Concomitant]
  11. MIACALCIN [Concomitant]
  12. CALCIUM [Concomitant]
  13. VITAMIN CAP [Concomitant]
  14. NICORETTE [Concomitant]
     Dates: start: 20000101

REACTIONS (49)
  - ABDOMINAL PAIN [None]
  - ABSCESS JAW [None]
  - ACCIDENTAL OVERDOSE [None]
  - ANXIETY [None]
  - BACK PAIN [None]
  - BLOOD CREATININE INCREASED [None]
  - BLOOD GLUCOSE INCREASED [None]
  - BLOOD UREA INCREASED [None]
  - BONE DISORDER [None]
  - BONE EROSION [None]
  - CHRONIC OBSTRUCTIVE PULMONARY DISEASE [None]
  - CHRONIC RESPIRATORY FAILURE [None]
  - COLITIS [None]
  - DEHYDRATION [None]
  - DEPRESSION [None]
  - DIABETES MELLITUS NON-INSULIN-DEPENDENT [None]
  - DIARRHOEA [None]
  - DISEASE PROGRESSION [None]
  - DIVERTICULITIS [None]
  - DIZZINESS [None]
  - DYSPNOEA [None]
  - ELECTROLYTE IMBALANCE [None]
  - GINGIVITIS [None]
  - HYPERCALCAEMIA [None]
  - HYPERPARATHYROIDISM PRIMARY [None]
  - HYPOXIA [None]
  - IMPAIRED HEALING [None]
  - LETHARGY [None]
  - MALIGNANT NEOPLASM PROGRESSION [None]
  - MENTAL STATUS CHANGES [None]
  - MOUTH ULCERATION [None]
  - MYOCLONUS [None]
  - NAUSEA [None]
  - NEPHROCALCINOSIS [None]
  - OSTEOMYELITIS [None]
  - OSTEONECROSIS [None]
  - PNEUMONIA [None]
  - POLYP [None]
  - PRIMARY SEQUESTRUM [None]
  - RENAL FAILURE ACUTE [None]
  - RESPIRATORY TRACT INFECTION [None]
  - SEQUESTRECTOMY [None]
  - SOFT TISSUE INFECTION [None]
  - SOMNOLENCE [None]
  - STAPHYLOCOCCAL INFECTION [None]
  - TOOTH DISORDER [None]
  - TOOTH EXTRACTION [None]
  - URINARY TRACT INFECTION [None]
  - VOMITING [None]
